FAERS Safety Report 8904072 (Version 2)
Quarter: 2012Q4

REPORT INFORMATION
  Report Type: 
  Country: JP (occurrence: JP)
  Receive Date: 20121112
  Receipt Date: 20121121
  Transmission Date: 20130627
  Serious: Yes (Other)
  Sender: FDA-Public Use
  Company Number: JP-PFIZER INC-2012263001

PATIENT
  Age: 92 Year
  Sex: Female

DRUGS (12)
  1. LYRICA [Suspect]
     Indication: PAIN
     Dosage: 75 mg, 2x/day
     Route: 048
     Dates: start: 20121005, end: 20121015
  2. LYRICA [Suspect]
     Dosage: 75 mg, 1x/day
     Route: 048
     Dates: start: 20121016, end: 20121018
  3. SEROQUEL [Concomitant]
     Indication: UNREST
     Dosage: 100 mg, 4x/day
     Route: 048
     Dates: start: 20120316
  4. GOODMIN [Concomitant]
     Indication: INSOMNIA
     Dosage: 0.25 mg, 1x/day
     Route: 048
     Dates: start: 20120606
  5. SEDIEL [Concomitant]
     Indication: UNREST
     Dosage: 30 mg, 3x/day
     Route: 048
     Dates: start: 20120318
  6. OLMETEC [Concomitant]
     Indication: HYPERTENSION
     Dosage: 20 mg, 1x/day
     Route: 048
     Dates: start: 201209, end: 20121031
  7. LANSOPRAZOLE [Concomitant]
     Indication: PROPHYLAXIS
     Dosage: 15 mg, 1x/day
     Route: 048
     Dates: start: 201203
  8. PREDONINE [Concomitant]
     Indication: POLYMYOSITIS
     Dosage: 2 mg, 1x/day
     Route: 048
     Dates: start: 201203
  9. PLAVIX [Concomitant]
     Indication: PROPHYLAXIS
     Dosage: 75 mg, 1x/day
     Route: 048
     Dates: start: 201203, end: 20121031
  10. GASCON [Concomitant]
     Indication: ABDOMINAL DISTENSION
     Dosage: 120 mg, 3x/day
     Route: 048
     Dates: start: 201206
  11. MAG-LAX [Concomitant]
     Indication: CONSTIPATION
     Dosage: 990 mg, 3x/day
     Route: 048
     Dates: start: 201206
  12. NITRODERM TTS [Concomitant]
     Indication: ISCHEMIC HEART DISEASE
     Dosage: 25 mg, 1x/day
     Route: 058
     Dates: start: 201209

REACTIONS (4)
  - Rhabdomyolysis [Recovered/Resolved]
  - Aphagia [Unknown]
  - Hypokinesia [Recovering/Resolving]
  - Dehydration [Unknown]
